FAERS Safety Report 11540478 (Version 1)
Quarter: 2015Q3

REPORT INFORMATION
  Report Type: Spontaneous
  Country: US (occurrence: US)
  Receive Date: 20150923
  Receipt Date: 20150923
  Transmission Date: 20151125
  Serious: No
  Sender: FDA-Public Use
  Company Number: US-BEH-2014047627

PATIENT
  Age: 62 Year
  Sex: Female
  Weight: 81 kg

DRUGS (11)
  1. PRIVIGEN [Suspect]
     Active Substance: HUMAN IMMUNOGLOBULIN G
     Indication: HYPOGAMMAGLOBULINAEMIA
     Dosage: FREQUENCY: EVERY 2 MONTHS
     Route: 042
  2. SIMVASTATIN 40 MG TABLET [Concomitant]
  3. ACETAMINOPHEN. [Concomitant]
     Active Substance: ACETAMINOPHEN
  4. DIPHENHYDRAMINE. [Concomitant]
     Active Substance: DIPHENHYDRAMINE
  5. EPI-PEN AUTOINJECTOR [Concomitant]
  6. CEFTIBUTEN 400 MG CAPSULE [Concomitant]
  7. SODIUM CHLORIDE 0.9% [Concomitant]
     Active Substance: SODIUM CHLORIDE
  8. CYMBALTA 30 MG CAPSULE [Concomitant]
  9. RANITIDINE 75 MG TABLET [Concomitant]
  10. ARMOUR THYROID 60 MG TABLET [Concomitant]
  11. METOPROLOL TARTATE 50 MG TAB [Concomitant]

REACTIONS (1)
  - Ear infection [Unknown]

NARRATIVE: CASE EVENT DATE: 20141216
